FAERS Safety Report 9767055 (Version 1)
Quarter: 2013Q4

REPORT INFORMATION
  Report Type: Spontaneous
  Country: US (occurrence: US)
  Receive Date: 20131217
  Receipt Date: 20131217
  Transmission Date: 20140711
  Serious: Yes (Hospitalization)
  Sender: FDA-Public Use
  Company Number: US-GLAXOSMITHKLINE-A1037891A

PATIENT
  Age: 63 Year
  Sex: Male

DRUGS (16)
  1. VOTRIENT [Suspect]
     Indication: RENAL CANCER
     Dosage: 800MG PER DAY
     Route: 048
     Dates: start: 20130723
  2. AMOXICILLIN [Concomitant]
  3. DENOSUMAB [Concomitant]
  4. BENADRYL [Concomitant]
  5. LEVEMIR [Concomitant]
  6. LEXAPRO [Concomitant]
  7. FENTANYL [Concomitant]
  8. MOTRIN IB [Concomitant]
  9. PANTOPRAZOLE [Concomitant]
  10. MEGACE [Concomitant]
  11. OXYCODONE [Concomitant]
  12. ZOFRAN [Concomitant]
  13. SENNA [Concomitant]
  14. ASPIRIN [Concomitant]
  15. LACTOSE [Concomitant]
  16. CALTRATE 600 + D [Concomitant]

REACTIONS (3)
  - Nausea [Unknown]
  - Vomiting [Unknown]
  - Fatigue [Unknown]
